FAERS Safety Report 9147406 (Version 2)
Quarter: 2013Q1

REPORT INFORMATION
  Report Type: Spontaneous
  Country: RU (occurrence: None)
  Receive Date: 20130213
  Receipt Date: 20130304
  Transmission Date: 20140127
  Serious: Yes (Death, Life-Threatening)
  Sender: FDA-Public Use
  Company Number: 2013P1001874

PATIENT
  Age: 50 Year
  Sex: Female

DRUGS (2)
  1. LIDOCAINE [Suspect]
     Indication: NERVE BLOCK
  2. LIDOCAINE [Suspect]
     Indication: BACK PAIN

REACTIONS (2)
  - Anaphylactic shock [None]
  - Convulsion [None]
